FAERS Safety Report 4695468-X (Version None)
Quarter: 2005Q2

REPORT INFORMATION
  Report Type: 
  Country: None (occurrence: None)
  Receive Date: 20050620
  Receipt Date: 20050620
  Transmission Date: 20051028
  Serious: No
  Sender: FDA-Public Use
  Company Number: None

PATIENT
  Sex: Female
  Weight: 65.5 kg

DRUGS (5)
  1. FLUOROURACIL [Suspect]
     Indication: ANAL CANCER
     Dosage: 1000 MG/M2/DAY BY CONTINUOUS INFUSION ON DAYS 1-4 AND 29-32
     Route: 042
     Dates: start: 20050425, end: 20050527
  2. MITOMYCIN-C [Suspect]
     Dates: start: 20050523
  3. ATENOLOL [Concomitant]
  4. ENALAPRIL [Concomitant]
  5. HYDROCHLOROTHIAZIDE [Concomitant]

REACTIONS (14)
  - ABDOMINAL DISCOMFORT [None]
  - ABDOMINAL PAIN [None]
  - ABDOMINAL PAIN UPPER [None]
  - ANAEMIA [None]
  - ASTHENIA [None]
  - BLOOD PRESSURE DECREASED [None]
  - CHILLS [None]
  - DIARRHOEA [None]
  - FEBRILE NEUTROPENIA [None]
  - GASTROINTESTINAL DISORDER [None]
  - NAUSEA [None]
  - PLATELET COUNT DECREASED [None]
  - RADIATION SKIN INJURY [None]
  - RECTAL HAEMORRHAGE [None]
